FAERS Safety Report 14641671 (Version 1)
Quarter: 2018Q1

REPORT INFORMATION
  Report Type: Spontaneous
  Country: DE (occurrence: DE)
  Receive Date: 20180315
  Receipt Date: 20180315
  Transmission Date: 20180509
  Serious: Yes (Death, Other)
  Sender: FDA-Public Use
  Company Number: DE-TEVA-2018-DE-867438

PATIENT
  Age: 14 Year
  Sex: Male
  Weight: 43 kg

DRUGS (5)
  1. OMEPRAZOL [Concomitant]
     Active Substance: OMEPRAZOLE
     Dosage: 20 MILLIGRAM DAILY; ABENDS 20MG ALS LANGTEITMEDIKATION
     Route: 065
  2. RISPERIDONE. [Suspect]
     Active Substance: RISPERIDONE
     Indication: AGGRESSION
     Dosage: 0.25MG-0.25MG-0.5MG
  3. MOVICOL [Concomitant]
     Active Substance: POLYETHYLENE GLYCOL 3350\POTASSIUM CHLORIDE\SODIUM BICARBONATE\SODIUM CHLORIDE
     Dosage: 1 BEUTEL BEI BEDARF
     Route: 048
  4. PIPAMPERON-NEURAXPHARM SAFT (20 MG / 5 ML L?SUNG ZUM EINNEHMEN) [Interacting]
     Active Substance: PIPAMPERONE HYDROCHLORIDE
     Indication: AGGRESSION
     Dosage: 0.25MG-0.25MG-0.5MG
     Route: 048
  5. VITAMIN D [Concomitant]
     Active Substance: CHOLECALCIFEROL
     Route: 065

REACTIONS (6)
  - Sedation complication [Not Recovered/Not Resolved]
  - Haemoptysis [Unknown]
  - Cardiac arrest [Fatal]
  - Sudden cardiac death [Fatal]
  - Muscle spasms [Unknown]
  - Drug interaction [Unknown]
